FAERS Safety Report 7516769-3 (Version None)
Quarter: 2011Q2

REPORT INFORMATION
  Report Type: 
  Country: None (occurrence: None)
  Receive Date: 20110601
  Receipt Date: 20110525
  Transmission Date: 20111010
  Serious: Yes (Other)
  Sender: FDA-Public Use
  Company Number: PHHY2011GB44671

PATIENT
  Age: 83 Year
  Sex: Male

DRUGS (5)
  1. TRIMETHOPRIM [Concomitant]
     Dosage: 200 MG, UNK
  2. DAKTACORT [Concomitant]
  3. AMLODIPINE [Suspect]
     Dosage: 10 MG, UNK
     Route: 048
     Dates: start: 20100916
  4. AMLODIPINE [Suspect]
     Dosage: 5 MG, UNK
     Route: 048
     Dates: end: 20101210
  5. AMLODIPINE [Suspect]
     Dosage: 5 MG, UNK
     Route: 048
     Dates: start: 20100902, end: 20100916

REACTIONS (4)
  - URETHRAL STENOSIS [None]
  - OEDEMA PERIPHERAL [None]
  - URETHRITIS [None]
  - DYSURIA [None]
